FAERS Safety Report 21411853 (Version 3)
Quarter: 2022Q4

REPORT INFORMATION
  Report Type: Spontaneous
  Country: PL (occurrence: None)
  Receive Date: 20221005
  Receipt Date: 20221013
  Transmission Date: 20230113
  Serious: Yes (Other)
  Sender: FDA-Public Use
  Company Number: 2022A335120

PATIENT
  Age: 75 Year
  Sex: Male

DRUGS (3)
  1. DAPAGLIFLOZIN [Suspect]
     Active Substance: DAPAGLIFLOZIN
     Indication: Type 2 diabetes mellitus
     Route: 048
     Dates: start: 20220913
  2. SHORT-ACTING INSULIN [Concomitant]
     Route: 065
  3. INSULIN NOS [Concomitant]
     Active Substance: INSULIN NOS
     Route: 065

REACTIONS (9)
  - Asthenia [Not Recovered/Not Resolved]
  - Somnolence [Not Recovered/Not Resolved]
  - Pollakiuria [Not Recovered/Not Resolved]
  - Skin cancer [Unknown]
  - Feeling abnormal [Unknown]
  - Diabetes mellitus inadequate control [Unknown]
  - Malaise [Unknown]
  - Renal disorder [Unknown]
  - Apathy [Unknown]

NARRATIVE: CASE EVENT DATE: 20220913
